FAERS Safety Report 20233114 (Version 1)
Quarter: 2021Q4

REPORT INFORMATION
  Report Type: Spontaneous
  Country: US (occurrence: None)
  Receive Date: 20211227
  Receipt Date: 20211227
  Transmission Date: 20220303
  Serious: No
  Sender: FDA-Public Use
  Company Number: 2021A900670

PATIENT
  Age: 76 Year
  Sex: Female
  Weight: 45 kg

DRUGS (15)
  1. SEROQUEL [Suspect]
     Active Substance: QUETIAPINE FUMARATE
     Route: 048
  2. NUPLAZID [Suspect]
     Active Substance: PIMAVANSERIN TARTRATE
     Indication: Parkinson^s disease
     Dosage: CAPSULE
     Route: 065
     Dates: start: 202110
  3. NUPLAZID [Suspect]
     Active Substance: PIMAVANSERIN TARTRATE
     Indication: Hallucination
     Dosage: CAPSULE
     Route: 065
     Dates: start: 202110
  4. NUPLAZID [Suspect]
     Active Substance: PIMAVANSERIN TARTRATE
     Indication: Delusion
     Dosage: CAPSULE
     Route: 065
     Dates: start: 202110
  5. MELATONIN [Suspect]
     Active Substance: MELATONIN
     Route: 065
  6. XANAX [Suspect]
     Active Substance: ALPRAZOLAM
     Route: 065
  7. DEPAKOTE [Suspect]
     Active Substance: DIVALPROEX SODIUM
     Route: 065
  8. NAMENDA [Concomitant]
     Active Substance: MEMANTINE HYDROCHLORIDE
  9. AMLODIPINE [Concomitant]
     Active Substance: AMLODIPINE BESYLATE
  10. ZOLOFT [Concomitant]
     Active Substance: SERTRALINE HYDROCHLORIDE
  11. BUSPAR [Concomitant]
     Active Substance: BUSPIRONE HYDROCHLORIDE
  12. BYSTOLIC [Concomitant]
     Active Substance: NEBIVOLOL HYDROCHLORIDE
  13. GALANTAMINE [Concomitant]
     Active Substance: GALANTAMINE
  14. NORVASC [Concomitant]
     Active Substance: AMLODIPINE BESYLATE
  15. MEGACE [Concomitant]
     Active Substance: MEGESTROL ACETATE

REACTIONS (11)
  - Condition aggravated [Not Recovered/Not Resolved]
  - Mania [Not Recovered/Not Resolved]
  - Logorrhoea [Not Recovered/Not Resolved]
  - Abnormal behaviour [Not Recovered/Not Resolved]
  - Agitation [Not Recovered/Not Resolved]
  - Aggression [Not Recovered/Not Resolved]
  - Hallucination [Not Recovered/Not Resolved]
  - Psychomotor hyperactivity [Unknown]
  - Hypersomnia [Unknown]
  - Sedation [Not Recovered/Not Resolved]
  - Somnolence [Unknown]
